FAERS Safety Report 18190967 (Version 3)
Quarter: 2020Q4

REPORT INFORMATION
  Report Type: Report from Study
  Country: US (occurrence: US)
  Receive Date: 20200825
  Receipt Date: 20201016
  Transmission Date: 20210113
  Serious: No
  Sender: FDA-Public Use
  Company Number: NVSC2020US232960

PATIENT
  Sex: Female

DRUGS (2)
  1. ILARIS [Suspect]
     Active Substance: CANAKINUMAB
     Indication: URTICARIA THERMAL
  2. ILARIS [Suspect]
     Active Substance: CANAKINUMAB
     Indication: COLD URTICARIA
     Dosage: 150 MG, EVERY 8 WEEKS
     Route: 058

REACTIONS (2)
  - Product use in unapproved indication [Unknown]
  - Illness [Unknown]
